FAERS Safety Report 5670190-1 (Version None)
Quarter: 2008Q1

REPORT INFORMATION
  Report Type: 
  Country: None (occurrence: None)
  Receive Date: 20080312
  Receipt Date: 20080305
  Transmission Date: 20080703
  Serious: Yes (Death, Life-Threatening, Hospitalization, Other)
  Sender: FDA-Public Use
  Company Number: 062-21880-08020459

PATIENT
  Age: 39 Year
  Sex: Male
  Weight: 89 kg

DRUGS (5)
  1. REVLIMID (LENALIDOMIDE) (CAPSULES) [Suspect]
     Indication: HODGKIN'S DISEASE
     Dosage: 25 MG, DAILY, ORAL
     Route: 048
     Dates: start: 20080121, end: 20080126
  2. PANTAZOL ( PANTOPRAZOLE SODIUM) [Concomitant]
  3. DIFLUCAN [Concomitant]
  4. PREDNISOLONE [Concomitant]
  5. LINEZOLID [Concomitant]

REACTIONS (25)
  - CARDIOVASCULAR INSUFFICIENCY [None]
  - DIALYSIS [None]
  - DIARRHOEA [None]
  - EMPHYSEMA [None]
  - HAEMATOCRIT DECREASED [None]
  - HAEMOGLOBIN DECREASED [None]
  - HEPATIC FAILURE [None]
  - HEPATOMEGALY [None]
  - KLEBSIELLA INFECTION [None]
  - MALIGNANT NEOPLASM PROGRESSION [None]
  - MARROW HYPERPLASIA [None]
  - NEUTROPENIC SEPSIS [None]
  - NO THERAPEUTIC RESPONSE [None]
  - PLATELET COUNT DECREASED [None]
  - PNEUMOCYSTIS JIROVECI INFECTION [None]
  - PNEUMONIA [None]
  - RED BLOOD CELL COUNT DECREASED [None]
  - RENAL FAILURE [None]
  - RESPIRATORY FAILURE [None]
  - SINUS TACHYCARDIA [None]
  - SPUTUM CULTURE POSITIVE [None]
  - TRICUSPID VALVE INCOMPETENCE [None]
  - URINARY TRACT INFECTION [None]
  - VENTRICULAR HYPOKINESIA [None]
  - WHITE BLOOD CELL COUNT DECREASED [None]
